FAERS Safety Report 4939810-0 (Version None)
Quarter: 2006Q1

REPORT INFORMATION
  Report Type: 
  Country: None (occurrence: None)
  Receive Date: 20060310
  Receipt Date: 20050304
  Transmission Date: 20060701
  Serious: Yes (Hospitalization)
  Sender: FDA-Public Use
  Company Number: US-MERCK-0503USA01018

PATIENT
  Age: 81 Year
  Sex: Female
  Weight: 64 kg

DRUGS (6)
  1. VIOXX [Suspect]
     Indication: ARTHRITIS
     Route: 048
     Dates: start: 20030728, end: 20040426
  2. SYNTHROID [Concomitant]
     Route: 065
  3. ZOCOR [Concomitant]
     Route: 065
  4. PREMARIN [Concomitant]
     Route: 065
  5. DIOVAN [Concomitant]
     Route: 065
  6. METFORMIN [Concomitant]
     Route: 065

REACTIONS (3)
  - CARDIAC FAILURE CONGESTIVE [None]
  - CARDIAC VALVE DISEASE [None]
  - CORONARY ARTERY OCCLUSION [None]
